FAERS Safety Report 16377960 (Version 3)
Quarter: 2019Q2

REPORT INFORMATION
  Report Type: Spontaneous
  Country: CZ (occurrence: CZ)
  Receive Date: 20190531
  Receipt Date: 20190619
  Transmission Date: 20190711
  Serious: Yes (Life-Threatening)
  Sender: FDA-Public Use
  Company Number: CZ-AMREGENT-20191038

PATIENT
  Age: 3 Day
  Sex: Male
  Weight: 2.8 kg

DRUGS (5)
  1. FERINJECT [Suspect]
     Active Substance: FERRIC CARBOXYMALTOSE
     Dosage: UNKNOWN
     Route: 064
  2. MALTOFER (IRON POLYMALTOSE) [Suspect]
     Active Substance: IRON POLYMALTOSE
     Dosage: UNKNOWN
     Route: 064
  3. BETAXOLOL. [Suspect]
     Active Substance: BETAXOLOL
     Dosage: UNKNOWN
     Route: 064
  4. VENOFER [Suspect]
     Active Substance: IRON SUCROSE
     Dosage: UNKNOWN
     Route: 064
  5. DETRALEX [Suspect]
     Active Substance: DIOSMIN\HESPERIDIN
     Dosage: UNKNOWN
     Route: 064

REACTIONS (8)
  - Foetal exposure during pregnancy [Unknown]
  - Hyperinsulinism [Unknown]
  - Bradycardia neonatal [Unknown]
  - Oxygen saturation decreased [Unknown]
  - Atrophy [Unknown]
  - Hypotonia neonatal [Unknown]
  - Muscle spasms [Unknown]
  - Seizure [Unknown]
